FAERS Safety Report 20959529 (Version 1)
Quarter: 2022Q2

REPORT INFORMATION
  Report Type: Spontaneous
  Country: JP (occurrence: JP)
  Receive Date: 20220614
  Receipt Date: 20220614
  Transmission Date: 20220721
  Serious: Yes (Other)
  Sender: FDA-Public Use
  Company Number: JP-ALLERGAN-2219038US

PATIENT

DRUGS (3)
  1. URSODIOL [Suspect]
     Active Substance: URSODIOL
     Indication: Product used for unknown indication
     Dosage: 900 MG, QD
     Route: 048
  2. REMICADE [Suspect]
     Active Substance: INFLIXIMAB
     Indication: Product used for unknown indication
     Dosage: 100 MG
     Route: 041
  3. PREDNISOLONE [Concomitant]
     Active Substance: PREDNISOLONE

REACTIONS (7)
  - Adenocarcinoma [Unknown]
  - Proctocolectomy [Unknown]
  - Liver transplant [Unknown]
  - Portal hypertension [Unknown]
  - Varices oesophageal [Unknown]
  - Ascites [Unknown]
  - Splenomegaly [Unknown]
